FAERS Safety Report 6916896-5 (Version None)
Quarter: 2010Q3

REPORT INFORMATION
  Report Type: 
  Country: None (occurrence: None)
  Receive Date: 20100809
  Receipt Date: 20100809
  Transmission Date: 20110219
  Serious: Yes (Life-Threatening, Hospitalization)
  Sender: FDA-Public Use
  Company Number: None

PATIENT
  Age: 66 Year
  Sex: Male
  Weight: 78.9 kg

DRUGS (1)
  1. ASPIRIN [Suspect]
     Indication: CARDIOVASCULAR EVENT PROPHYLAXIS
     Dosage: 81 MG EVERY DAY PO
     Route: 048
     Dates: start: 20071026, end: 20100112

REACTIONS (2)
  - FALL [None]
  - SUBDURAL HAEMATOMA [None]
